FAERS Safety Report 6109463-7 (Version None)
Quarter: 2009Q1

REPORT INFORMATION
  Report Type: 
  Country: None (occurrence: None)
  Receive Date: 20090306
  Receipt Date: 20090227
  Transmission Date: 20090719
  Serious: Yes (Hospitalization, Other)
  Sender: FDA-Public Use
  Company Number: CERZ-1000528

PATIENT
  Age: 23 Year
  Sex: Male
  Weight: 70 kg

DRUGS (1)
  1. CEREZYME [Suspect]
     Indication: GAUCHER'S DISEASE
     Dosage: 4200 U, Q2W, INTRAVENOUS
     Route: 042
     Dates: start: 20080225

REACTIONS (2)
  - KIDNEY INFECTION [None]
  - NEPHROLITHIASIS [None]
